FAERS Safety Report 4486576-7 (Version None)
Quarter: 2004Q4

REPORT INFORMATION
  Report Type: 
  Country: None (occurrence: None)
  Receive Date: 20041026
  Receipt Date: 20041026
  Transmission Date: 20050328
  Serious: No
  Sender: FDA-Public Use
  Company Number: None

PATIENT
  Age: 36 Year
  Sex: Female
  Weight: 68.0396 kg

DRUGS (1)
  1. CLIMARA [Suspect]
     Indication: ARTIFICIAL MENOPAUSE
     Dosage: 1 PATCH EVERY WEEK
     Dates: start: 20041020

REACTIONS (3)
  - APPLICATION SITE IRRITATION [None]
  - OROPHARYNGEAL SWELLING [None]
  - PRURITUS [None]
